FAERS Safety Report 4875491-2 (Version None)
Quarter: 2005Q4

REPORT INFORMATION
  Report Type: 
  Country: None (occurrence: None)
  Receive Date: 20051202
  Receipt Date: 20041220
  Transmission Date: 20060501
  Serious: Yes (Other)
  Sender: FDA-Public Use
  Company Number: HQWYE152622DEC04

PATIENT
  Sex: Male

DRUGS (1)
  1. ORUDIS KT [Suspect]
     Indication: TOOTHACHE
     Dosage: 1 TAB THREE TIMES DAILY, ORAL
     Route: 048
     Dates: start: 20041219, end: 20041219

REACTIONS (1)
  - HAEMOPTYSIS [None]
